FAERS Safety Report 18574947 (Version 1)
Quarter: 2020Q4

REPORT INFORMATION
  Report Type: Spontaneous
  Country: CN (occurrence: CN)
  Receive Date: 20201203
  Receipt Date: 20201203
  Transmission Date: 20210114
  Serious: Yes (Hospitalization, Other)
  Sender: FDA-Public Use
  Company Number: CN-LUPIN PHARMACEUTICALS INC.-2020-09754

PATIENT
  Age: 47 Year
  Sex: Male

DRUGS (5)
  1. DECITABINE INJECTION [Suspect]
     Active Substance: DECITABINE
     Indication: GLOMERULONEPHRITIS MEMBRANOUS
     Dosage: 10 MILLIGRAM, UNK (INFUSION)
     Route: 042
  2. CYCLOPHOSPHAMIDE. [Concomitant]
     Active Substance: CYCLOPHOSPHAMIDE
     Dosage: 25 MILLIGRAM, QD (ANOTHER COURSE)
     Route: 048
  3. CYCLOPHOSPHAMIDE. [Concomitant]
     Active Substance: CYCLOPHOSPHAMIDE
     Indication: GLOMERULONEPHRITIS MEMBRANOUS
     Dosage: 0.8 GRAM, EVERY 2 WEEKS
     Route: 042
  4. PREDNISONE. [Concomitant]
     Active Substance: PREDNISONE
     Indication: GLOMERULONEPHRITIS MEMBRANOUS
     Dosage: 60 MILLIGRAM, QD
     Route: 048
  5. PREDNISONE. [Concomitant]
     Active Substance: PREDNISONE
     Dosage: UNK (ANOTHER COURSE)
     Route: 048

REACTIONS (5)
  - Acute kidney injury [Recovered/Resolved]
  - Thrombotic microangiopathy [Recovering/Resolving]
  - Weight increased [Recovering/Resolving]
  - Renal tubular necrosis [Recovering/Resolving]
  - Generalised oedema [Recovering/Resolving]
